FAERS Safety Report 20871642 (Version 1)
Quarter: 2022Q2

REPORT INFORMATION
  Report Type: Spontaneous
  Country: US (occurrence: None)
  Receive Date: 20220524
  Receipt Date: 20220524
  Transmission Date: 20220721
  Serious: No
  Sender: FDA-Public Use
  Company Number: None

PATIENT
  Age: 84 Year
  Sex: Male
  Weight: 81.65 kg

DRUGS (12)
  1. CAPECITABINE [Suspect]
     Active Substance: CAPECITABINE
     Indication: Chronic lymphocytic leukaemia
     Dosage: FREQUENCY : TWICE A DAY;?
     Route: 048
     Dates: start: 202205
  2. AZELAIC ACID EXTERNAL GEL [Concomitant]
  3. BASAGLAR [Concomitant]
     Active Substance: INSULIN GLARGINE
  4. CHROMIUM [Concomitant]
     Active Substance: CHROMIC CHLORIDE\CHROMIUM
  5. CREON [Concomitant]
     Active Substance: PANCRELIPASE AMYLASE\PANCRELIPASE LIPASE\PANCRELIPASE PROTEASE
  6. DOSCUSATE SODIUM [Concomitant]
  7. GEMCITABINE HYDROCHLORIDE [Concomitant]
     Active Substance: GEMCITABINE HYDROCHLORIDE
  8. LANTANOPROST OPTHALMIC SOLUTION [Concomitant]
  9. POTASSIU [Concomitant]
  10. MAGNESIUM OXIDE [Concomitant]
     Active Substance: MAGNESIUM OXIDE
  11. VITAMINS [Concomitant]
     Active Substance: VITAMINS
  12. SIMBRINAZ OPTHALMIC SUSPENSION [Concomitant]

REACTIONS (2)
  - Ulcer [None]
  - Hypotension [None]
